FAERS Safety Report 8179969-8 (Version None)
Quarter: 2012Q1

REPORT INFORMATION
  Report Type: 
  Country: None (occurrence: None)
  Receive Date: 20120302
  Receipt Date: 20120222
  Transmission Date: 20120608
  Serious: Yes (Other)
  Sender: FDA-Public Use
  Company Number: US-JNJFOC-20120211834

PATIENT
  Sex: Male
  Weight: 77.11 kg

DRUGS (13)
  1. XARELTO [Suspect]
     Indication: ATRIAL FIBRILLATION
     Route: 048
     Dates: start: 20120213
  2. LIVALO [Concomitant]
     Indication: BLOOD TRIGLYCERIDES
     Route: 048
  3. KLOR-CON [Concomitant]
     Route: 048
  4. ASPIRIN [Concomitant]
     Indication: HYPERTENSION
     Route: 048
  5. ISOSORBIDE DINITRATE [Concomitant]
     Indication: HYPERTENSION
     Route: 048
  6. CLONIDINE [Concomitant]
     Indication: HYPERTENSION
     Dosage: AND AS NEEDED
     Route: 048
  7. AMLODIPINE [Concomitant]
     Indication: HYPERTENSION
     Route: 048
  8. ATENOLOL [Concomitant]
     Indication: HYPERTENSION
     Route: 048
  9. BENAZEPRIL HYDROCHLORIDE [Concomitant]
     Indication: HYPERTENSION
     Route: 048
  10. FUROSEMIDE [Concomitant]
     Route: 048
  11. TENORMIN [Concomitant]
     Indication: HYPERTENSION
     Route: 048
  12. ATACAND [Concomitant]
     Indication: HYPERTENSION
     Route: 048
  13. MINOXIDIL [Concomitant]
     Indication: BLOOD PRESSURE
     Route: 048

REACTIONS (3)
  - BLOOD PRESSURE INCREASED [None]
  - HAEMATOMA [None]
  - DRUG INEFFECTIVE [None]
